FAERS Safety Report 8493549-6 (Version None)
Quarter: 2012Q3

REPORT INFORMATION
  Report Type: 
  Country: None (occurrence: None)
  Receive Date: 20120706
  Receipt Date: 20120621
  Transmission Date: 20120928
  Serious: No
  Sender: FDA-Public Use
  Company Number: US-ASTRAZENECA-2012SE42163

PATIENT
  Sex: Male

DRUGS (1)
  1. ZOMIG [Suspect]
     Route: 045

REACTIONS (1)
  - MIGRAINE [None]
